FAERS Safety Report 8206256-1 (Version None)
Quarter: 2012Q1

REPORT INFORMATION
  Report Type: 
  Country: None (occurrence: None)
  Receive Date: 20120313
  Receipt Date: 20120308
  Transmission Date: 20120608
  Serious: Yes (Hospitalization)
  Sender: FDA-Public Use
  Company Number: PHHO2012US003482

PATIENT
  Sex: Female
  Weight: 84.354 kg

DRUGS (11)
  1. PACLITAXEL [Suspect]
     Indication: BREAST CANCER
     Dosage: 80 MG/M2, UNK
     Dates: start: 20111117, end: 20120202
  2. PREDNISONE TAB [Concomitant]
     Dosage: 10 MG, QD
  3. AMBIEN [Concomitant]
     Indication: INSOMNIA
     Dosage: 10 MG, PRN
  4. CISPLATIN [Suspect]
     Indication: BREAST CANCER
     Dosage: 20 MG/M2, UNK
     Dates: start: 20111117, end: 20120202
  5. PREVACID [Concomitant]
     Dosage: 30 MG, QD
  6. ALBUTEROL SULFATE [Concomitant]
     Dosage: 90 UG, PRN
  7. LEVOFLOXACIN [Concomitant]
     Dosage: 750 MG, QD FOR 10 DAYS
  8. MULTI-VITAMINS [Concomitant]
     Dosage: UNK
  9. ATIVAN [Concomitant]
     Dosage: 1 MG, PRN
  10. AFINITOR [Suspect]
     Indication: BREAST CANCER
     Dosage: 5 MG, QD
     Route: 048
     Dates: start: 20111117, end: 20120208
  11. MAGNESIUM [Concomitant]
     Dosage: 500 MG, BID

REACTIONS (4)
  - ANAEMIA [None]
  - LEUKOCYTOSIS [None]
  - STREPTOCOCCAL URINARY TRACT INFECTION [None]
  - PNEUMONIA PNEUMOCOCCAL [None]
